FAERS Safety Report 7523788-X (Version None)
Quarter: 2011Q2

REPORT INFORMATION
  Report Type: 
  Country: None (occurrence: None)
  Receive Date: 20110603
  Receipt Date: 20110531
  Transmission Date: 20111010
  Serious: Yes (Death, Other)
  Sender: FDA-Public Use
  Company Number: DE-AMGEN-DEUNI2011027814

PATIENT
  Age: 73 Year
  Sex: Female

DRUGS (3)
  1. PEGFILGRASTIM [Suspect]
     Indication: CHRONIC LYMPHOCYTIC LEUKAEMIA
     Dosage: 6 MG, UNK
  2. DEXAMETHASONE [Concomitant]
     Indication: CHRONIC LYMPHOCYTIC LEUKAEMIA
     Dosage: 40 MG, UNK
     Route: 048
  3. CAMPATH [Concomitant]
     Indication: CHRONIC LYMPHOCYTIC LEUKAEMIA
     Dosage: 30 MG, UNK
     Route: 058

REACTIONS (7)
  - PNEUMONIA [None]
  - INFECTION [None]
  - THROAT LESION [None]
  - C-REACTIVE PROTEIN INCREASED [None]
  - COUGH [None]
  - NASOPHARYNGITIS [None]
  - URINARY TRACT INFECTION [None]
